FAERS Safety Report 7104118-4 (Version None)
Quarter: 2010Q4

REPORT INFORMATION
  Report Type: 
  Country: None (occurrence: None)
  Receive Date: 20101115
  Receipt Date: 20100616
  Transmission Date: 20110411
  Serious: No
  Sender: FDA-Public Use
  Company Number: US-ALLERGAN-1006898US

PATIENT
  Age: 50 Year
  Sex: Female
  Weight: 61.224 kg

DRUGS (3)
  1. BOTOX COSMETIC [Suspect]
     Indication: SKIN WRINKLING
     Dosage: 44 UNITS, SINGLE
     Dates: start: 20100329, end: 20100329
  2. BOTOX COSMETIC [Suspect]
     Dosage: UNK
     Dates: start: 20100106, end: 20100106
  3. BOTOX COSMETIC [Suspect]
     Dosage: UNK
     Dates: start: 20090726, end: 20090726

REACTIONS (1)
  - EYE DISORDER [None]
